FAERS Safety Report 10424595 (Version 1)
Quarter: 2014Q3

REPORT INFORMATION
  Report Type: Spontaneous
  Country: BR (occurrence: BR)
  Receive Date: 20140902
  Receipt Date: 20140902
  Transmission Date: 20150326
  Serious: Yes (Other)
  Sender: FDA-Public Use
  Company Number: BR-ABBVIE-14P-020-1278511-00

PATIENT
  Age: 50 Year
  Sex: Female
  Weight: 86 kg

DRUGS (4)
  1. LAMOTRIGINE. [Concomitant]
     Active Substance: LAMOTRIGINE
     Indication: DEPRESSION
  2. DEPAKOTE [Suspect]
     Active Substance: DIVALPROEX SODIUM
     Indication: DEPRESSION
  3. DEPAKOTE [Suspect]
     Active Substance: DIVALPROEX SODIUM
     Indication: BIPOLAR DISORDER
     Dosage: 1 IN THE MORNING AND 1 AT NIGHT; DAILY DOSE: 1000 MG
     Route: 048
     Dates: start: 20140711, end: 20140806
  4. LAMOTRIGINE. [Concomitant]
     Active Substance: LAMOTRIGINE
     Indication: BIPOLAR DISORDER
     Dosage: AT NIGHT; DAILY DOSE: 100 MILLIGRAM

REACTIONS (4)
  - Depression [Recovering/Resolving]
  - Agitation [Recovering/Resolving]
  - Nervousness [Recovering/Resolving]
  - Irritability [Recovering/Resolving]

NARRATIVE: CASE EVENT DATE: 20140711
